FAERS Safety Report 7657082-3 (Version None)
Quarter: 2011Q3

REPORT INFORMATION
  Report Type: 
  Country: None (occurrence: None)
  Receive Date: 20110804
  Receipt Date: 20100812
  Transmission Date: 20111222
  Serious: No
  Sender: FDA-Public Use
  Company Number: US-GLAXOSMITHKLINE-A0875579A

PATIENT
  Age: 74 Year
  Sex: Female

DRUGS (11)
  1. SINGULAIR [Concomitant]
  2. NORVASC [Concomitant]
  3. GLAUCOMA MEDICATION (UNSPECIFIED) [Concomitant]
  4. LOVASTATIN [Concomitant]
  5. DIOVAN [Concomitant]
  6. ADVAIR DISKUS 100/50 [Suspect]
     Indication: CHRONIC OBSTRUCTIVE PULMONARY DISEASE
     Dosage: 2PUFF TWICE PER DAY
     Route: 055
     Dates: start: 20100101
  7. BLOOD PRESSURE MEDICATION [Concomitant]
  8. ADVAIR DISKUS 100/50 [Suspect]
     Route: 055
     Dates: start: 20050101, end: 20100101
  9. SYNTHROID [Concomitant]
  10. ANTI-CHOLESTEROL MEDICATION [Concomitant]
  11. ZETIA [Concomitant]

REACTIONS (2)
  - THROAT IRRITATION [None]
  - APHONIA [None]
